FAERS Safety Report 8497968 (Version 3)
Quarter: 2013Q2

REPORT INFORMATION
  Report Type: Report from Study
  Country: US (occurrence: US)
  Receive Date: 20120406
  Receipt Date: 20130606
  Transmission Date: 20140414
  Serious: Yes (Hospitalization, Other)
  Sender: FDA-Public Use
  Company Number: US-ABBOTT-12P-163-0919239-00

PATIENT
  Age: 65 Year
  Sex: Male
  Weight: 95.34 kg

DRUGS (11)
  1. HUMIRA 40 MG/0.8 ML PEN [Suspect]
     Indication: CROHN^S DISEASE
  2. HUMIRA 40 MG/0.8 ML PEN [Suspect]
     Dates: end: 201203
  3. HUMIRA 40 MG/0.8 ML PEN [Suspect]
     Dates: start: 201207
  4. MERCAPTOPURINE [Suspect]
     Indication: PRODUCT USED FOR UNKNOWN INDICATION
  5. UNKNOWN MEDICATION [Suspect]
     Indication: CROHN^S DISEASE
     Dates: start: 201203, end: 201207
  6. PREDNISONE [Concomitant]
     Indication: PRODUCT USED FOR UNKNOWN INDICATION
  7. SEROQUEL [Concomitant]
     Indication: MENTAL DISORDER
  8. ASPIRIN [Concomitant]
     Indication: PRODUCT USED FOR UNKNOWN INDICATION
  9. CALCIUM +D [Concomitant]
     Indication: MINERAL SUPPLEMENTATION
  10. MULTIVITAMIN [Concomitant]
     Indication: VITAMIN SUPPLEMENTATION
  11. UNKNOWN PILL [Concomitant]
     Indication: GASTROOESOPHAGEAL REFLUX DISEASE

REACTIONS (29)
  - Skin ulcer [Recovered/Resolved]
  - Intestinal haemorrhage [Recovering/Resolving]
  - Haemorrhage [Recovering/Resolving]
  - Hernia [Unknown]
  - Cholelithiasis [Unknown]
  - Hepatic steatosis [Unknown]
  - Gastrointestinal stoma complication [Recovered/Resolved]
  - Platelet count decreased [Unknown]
  - White blood cell count abnormal [Unknown]
  - Haemoglobin decreased [Unknown]
  - Haematocrit decreased [Unknown]
  - White blood cell count abnormal [Recovering/Resolving]
  - Haemoglobin decreased [Not Recovered/Not Resolved]
  - Haematocrit decreased [Recovering/Resolving]
  - Platelet count decreased [Recovered/Resolved]
  - Crohn^s disease [Recovered/Resolved]
  - Gastrointestinal haemorrhage [Not Recovered/Not Resolved]
  - Abdominal pain [Not Recovered/Not Resolved]
  - Peripheral embolism [Recovered/Resolved]
  - Pulmonary embolism [Recovered/Resolved]
  - Injection site pain [Recovered/Resolved]
  - Device malfunction [Not Recovered/Not Resolved]
  - Incorrect dose administered [Not Recovered/Not Resolved]
  - Basal cell carcinoma [Not Recovered/Not Resolved]
  - Rectal haemorrhage [Recovered/Resolved]
  - Thrombosis [Recovered/Resolved]
  - Intestinal obstruction [Recovered/Resolved]
  - Viral infection [Unknown]
  - Loss of consciousness [Recovered/Resolved]
